FAERS Safety Report 12359175 (Version 2)
Quarter: 2016Q2

REPORT INFORMATION
  Report Type: Report from Study
  Country: MX (occurrence: MX)
  Receive Date: 20160512
  Receipt Date: 20160620
  Transmission Date: 20160815
  Serious: Yes (Other)
  Sender: FDA-Public Use
  Company Number: PHHY2016MX063263

PATIENT
  Sex: Female
  Weight: 105 kg

DRUGS (4)
  1. INSULIN [Concomitant]
     Active Substance: INSULIN NOS
     Indication: PRODUCT USED FOR UNKNOWN INDICATION
     Dosage: 76 IU, QD (45 IU IN MORNING AND 31 IU AT NIGHT)
     Route: 065
  2. EXFORGE [Suspect]
     Active Substance: AMLODIPINE BESYLATE\VALSARTAN
     Indication: HYPERTENSION
     Dosage: 1 DF (AMLODIPINE 5 MG, VALSARTAN 160 MG), QD
     Route: 065
     Dates: start: 20160425
  3. RISPERIDONE. [Concomitant]
     Active Substance: RISPERIDONE
     Indication: DEPRESSION
     Dosage: 1 DF, QD
     Route: 065
  4. LOSARTAN. [Concomitant]
     Active Substance: LOSARTAN
     Indication: PRODUCT USED FOR UNKNOWN INDICATION
     Route: 065

REACTIONS (9)
  - Abscess [Unknown]
  - Fatigue [Unknown]
  - Swelling [Unknown]
  - Angina pectoris [Unknown]
  - Thyroid disorder [Not Recovered/Not Resolved]
  - Tumour pain [Unknown]
  - Hypersensitivity [Not Recovered/Not Resolved]
  - Headache [Unknown]
  - Insomnia [Recovered/Resolved]
